FAERS Safety Report 8173908-1 (Version None)
Quarter: 2012Q1

REPORT INFORMATION
  Report Type: 
  Country: None (occurrence: None)
  Receive Date: 20120229
  Receipt Date: 20120215
  Transmission Date: 20120608
  Serious: Yes (Other)
  Sender: FDA-Public Use
  Company Number: US-ELI_LILLY_AND_COMPANY-US201201005648

PATIENT
  Age: 65 Year
  Sex: Female

DRUGS (11)
  1. CYMBALTA [Suspect]
     Dosage: 30 MG, EACH EVENING
     Route: 048
     Dates: start: 20111117, end: 20120101
  2. PRAVACHOL [Concomitant]
     Dosage: 40 MG, UNK
  3. FIORICET [Concomitant]
     Dosage: UNK, PRN
  4. SYNTHROID [Concomitant]
     Dosage: 125 MG, UNK
  5. METOPROLOL SUCCINATE [Concomitant]
     Dosage: 25 MG, UNK
  6. TOPAMAX [Concomitant]
     Dosage: 50 MG, UNK
  7. FLEXERIL [Concomitant]
     Dosage: 10 MG, UNK
  8. PRILOSEC [Concomitant]
     Dosage: 40 MG, UNK
  9. LISINOPRIL                              /USA/ [Concomitant]
     Dosage: 20 MG, UNK
  10. MELATONIN [Concomitant]
     Dosage: 3 MG, UNK
  11. CYMBALTA [Suspect]
     Indication: HEADACHE
     Dosage: 60 MG, QD
     Route: 048
     Dates: start: 20110729, end: 20111117

REACTIONS (7)
  - RASH [None]
  - OFF LABEL USE [None]
  - MUSCLE SPASMS [None]
  - WEIGHT DECREASED [None]
  - STOMATITIS [None]
  - BLISTER [None]
  - DIARRHOEA [None]
